FAERS Safety Report 12699725 (Version 1)
Quarter: 2016Q3

REPORT INFORMATION
  Report Type: Report from Study
  Country: US (occurrence: US)
  Receive Date: 20160830
  Receipt Date: 20160830
  Transmission Date: 20161109
  Serious: Yes (Hospitalization, Other)
  Sender: FDA-Public Use
  Company Number: US-JNJFOC-20160823289

PATIENT
  Sex: Male

DRUGS (2)
  1. DIOVAN [Concomitant]
     Active Substance: VALSARTAN
  2. IMBRUVICA [Suspect]
     Active Substance: IBRUTINIB
     Indication: PLASMA CELL MYELOMA
     Route: 048
     Dates: start: 20160625, end: 2016

REACTIONS (2)
  - Heart rate increased [Unknown]
  - Pneumonia [Unknown]
